FAERS Safety Report 6853954-8 (Version None)
Quarter: 2010Q3

REPORT INFORMATION
  Report Type: 
  Country: None (occurrence: None)
  Receive Date: 20100717
  Receipt Date: 20080125
  Transmission Date: 20110219
  Serious: Yes (Other)
  Sender: FDA-Public Use
  Company Number: US-PFIZER INC-2007107273

PATIENT
  Sex: Female
  Weight: 46.363 kg

DRUGS (9)
  1. CHANTIX [Suspect]
     Indication: SMOKING CESSATION THERAPY
     Dosage: EVERY DAY
     Route: 048
     Dates: start: 20071204, end: 20071214
  2. MONTELUKAST SODIUM [Concomitant]
     Indication: ASTHMA
  3. ZIAC [Concomitant]
     Indication: HYPERTENSION
  4. PAXIL [Concomitant]
     Dosage: 30MG DAILY
  5. CIPROFLOXACIN [Concomitant]
     Indication: CROHN'S DISEASE
  6. VITAMIN B-COMPLEX, OTHER COMBINATIONS [Concomitant]
  7. ALL OTHER THERAPEUTIC PRODUCTS [Concomitant]
  8. CALCIUM [Concomitant]
  9. B-12 LATINO DEPOT [Concomitant]

REACTIONS (7)
  - HEADACHE [None]
  - INSOMNIA [None]
  - PAIN [None]
  - PARAESTHESIA [None]
  - PHLEBITIS [None]
  - RADICULAR PAIN [None]
  - WEIGHT INCREASED [None]
